FAERS Safety Report 13869386 (Version 3)
Quarter: 2017Q3

REPORT INFORMATION
  Report Type: Report from Study
  Country: US (occurrence: US)
  Receive Date: 20170815
  Receipt Date: 20170913
  Transmission Date: 20171127
  Serious: Yes (Death)
  Sender: FDA-Public Use
  Company Number: US-PFIZER INC-2017343288

PATIENT
  Age: 21 Year
  Sex: Female

DRUGS (3)
  1. HYDROXYZINE PAMOATE. [Suspect]
     Active Substance: HYDROXYZINE PAMOATE
     Dosage: UNK
  2. FLUOXETINE [Suspect]
     Active Substance: FLUOXETINE HYDROCHLORIDE
     Dosage: UNK
  3. MELATONIN [Suspect]
     Active Substance: MELATONIN
     Dosage: UNK

REACTIONS (13)
  - Anion gap [Fatal]
  - Toxicity to various agents [Fatal]
  - Acute kidney injury [Fatal]
  - Electrocardiogram QT prolonged [Fatal]
  - Depressed level of consciousness [Fatal]
  - Bradypnoea [Fatal]
  - Respiratory depression [Fatal]
  - Coma [Fatal]
  - Rhabdomyolysis [Fatal]
  - Hypotension [Fatal]
  - Coagulopathy [Fatal]
  - Metabolic acidosis [Fatal]
  - Hepatotoxicity [Fatal]
